FAERS Safety Report 11539753 (Version 1)
Quarter: 2015Q3

REPORT INFORMATION
  Report Type: Other
  Country: AT (occurrence: AT)
  Receive Date: 20150923
  Receipt Date: 20150923
  Transmission Date: 20151125
  Serious: Yes (Death)
  Sender: FDA-Public Use
  Company Number: AT-JUBILANT GENERICS LIMITED-1042197

PATIENT
  Age: 60 Year
  Sex: Female

DRUGS (3)
  1. OLANZAPINE. [Suspect]
     Active Substance: OLANZAPINE
  2. CLOMIPRAMINE HYDROCHLORIDE. [Suspect]
     Active Substance: CLOMIPRAMINE HYDROCHLORIDE
  3. TRIMIPRAMINE [Suspect]
     Active Substance: TRIMIPRAMINE

REACTIONS (4)
  - Atrioventricular block complete [Fatal]
  - Cardiac failure [Fatal]
  - Coma [Fatal]
  - Myocardial ischaemia [Fatal]

NARRATIVE: CASE EVENT DATE: 20150909
